FAERS Safety Report 7692191-4 (Version None)
Quarter: 2011Q3

REPORT INFORMATION
  Report Type: 
  Country: None (occurrence: None)
  Receive Date: 20110818
  Receipt Date: 20110804
  Transmission Date: 20111222
  Serious: Yes (Life-Threatening, Other)
  Sender: FDA-Public Use
  Company Number: DE-GENENTECH-322864

PATIENT
  Sex: Male
  Weight: 80 kg

DRUGS (4)
  1. MABTHERA [Suspect]
     Indication: SPLENIC MARGINAL ZONE LYMPHOMA
     Dosage: 30 MG, UNK
     Route: 042
     Dates: start: 20110801, end: 20110801
  2. FENISTIL (GERMANY) [Concomitant]
     Indication: PRODUCT USED FOR UNKNOWN INDICATION
     Dosage: 4 MG, UNK
     Route: 042
     Dates: start: 20110801, end: 20110801
  3. RANITIC [Concomitant]
     Indication: PRODUCT USED FOR UNKNOWN INDICATION
     Dosage: 56 MG, UNK
     Route: 042
     Dates: start: 20110801, end: 20110801
  4. NOVALGIN [Concomitant]
     Indication: PRODUCT USED FOR UNKNOWN INDICATION
     Dosage: 1 G, UNK
     Route: 042
     Dates: start: 20110801, end: 20110801

REACTIONS (3)
  - BRAIN INJURY [None]
  - MULTI-ORGAN FAILURE [None]
  - VENTRICULAR FIBRILLATION [None]
